FAERS Safety Report 6396490-8 (Version None)
Quarter: 2009Q4

REPORT INFORMATION
  Report Type: 
  Country: None (occurrence: None)
  Receive Date: 20091012
  Receipt Date: 20091001
  Transmission Date: 20100525
  Serious: Yes (Other)
  Sender: FDA-Public Use
  Company Number: ES-ROCHE-658366

PATIENT
  Sex: Female
  Weight: 3.5 kg

DRUGS (5)
  1. TAMIFLU [Suspect]
     Dosage: FORM: HARD CAPSULE
     Route: 064
     Dates: start: 20090917, end: 20090921
  2. DEPAKENE [Concomitant]
     Indication: CONVULSION PROPHYLAXIS
     Dosage: STRENGTH: 200-300 MG TABLET
     Route: 064
  3. DACORTIN [Concomitant]
     Indication: THROMBOCYTOPENIA
     Route: 064
     Dates: start: 20090917
  4. FLEBOGAMMA [Concomitant]
     Indication: THROMBOCYTOPENIA
     Dosage: FORM: VIAL, STRENGTH: 10G/200 ML
     Route: 064
     Dates: start: 20090917, end: 20090918
  5. OMEPRAZOLE [Concomitant]
     Indication: PROPHYLAXIS
     Route: 064
     Dates: start: 20090917

REACTIONS (1)
  - STATUS EPILEPTICUS [None]
